FAERS Safety Report 14800012 (Version 1)
Quarter: 2018Q2

REPORT INFORMATION
  Report Type: Spontaneous
  Country: BE (occurrence: BE)
  Receive Date: 20180424
  Receipt Date: 20180424
  Transmission Date: 20180711
  Serious: Yes (Hospitalization)
  Sender: FDA-Public Use
  Company Number: BE-GLAXOSMITHKLINE-BE2018065363

PATIENT
  Age: 2 Month
  Sex: Female
  Weight: 4 kg

DRUGS (2)
  1. VENTOLIN [Suspect]
     Active Substance: ALBUTEROL SULFATE
     Indication: BRONCHITIS
     Dosage: 28 ?G, QD
     Route: 042
     Dates: start: 20180403
  2. ATROVENT [Suspect]
     Active Substance: IPRATROPIUM BROMIDE
     Indication: BRONCHITIS
     Dosage: 47 ?G, QD
     Route: 042
     Dates: start: 20180403

REACTIONS (2)
  - Incorrect route of drug administration [Unknown]
  - Tachycardia [Unknown]

NARRATIVE: CASE EVENT DATE: 20180403
